FAERS Safety Report 7888226-6 (Version None)
Quarter: 2011Q4

REPORT INFORMATION
  Report Type: 
  Country: None (occurrence: None)
  Receive Date: 20111101
  Receipt Date: 20111101
  Transmission Date: 20120403
  Serious: Yes (Other)
  Sender: FDA-Public Use
  Company Number: None

PATIENT
  Age: 60 Year
  Sex: Male
  Weight: 86.4 kg

DRUGS (1)
  1. MICARDIS [Suspect]
     Indication: HYPERTENSION

REACTIONS (4)
  - DYSPEPSIA [None]
  - DYSGEUSIA [None]
  - BURNING SENSATION [None]
  - MUSCLE SPASMS [None]
